FAERS Safety Report 13398690 (Version 1)
Quarter: 2017Q2

REPORT INFORMATION
  Report Type: Report from Study
  Country: US (occurrence: US)
  Receive Date: 20170403
  Receipt Date: 20170403
  Transmission Date: 20170830
  Serious: No
  Sender: FDA-Public Use
  Company Number: US-AMGEN-USASL2017045185

PATIENT
  Sex: Male

DRUGS (1)
  1. ENBREL [Suspect]
     Active Substance: ETANERCEPT
     Indication: RHEUMATOID ARTHRITIS
     Dosage: 50 MG, QWK
     Route: 065

REACTIONS (7)
  - Acne [Unknown]
  - Arthralgia [Unknown]
  - Dry mouth [Unknown]
  - Papule [Unknown]
  - Swelling [Unknown]
  - Superficial injury of eye [Unknown]
  - Pain [Not Recovered/Not Resolved]
